FAERS Safety Report 20944770 (Version 16)
Quarter: 2025Q1

REPORT INFORMATION
  Report Type: Report from Study
  Country: US (occurrence: US)
  Receive Date: 20220610
  Receipt Date: 20250310
  Transmission Date: 20250409
  Serious: Yes (Death, Hospitalization, Other)
  Sender: TAKEDA
  Company Number: US-TAKEDA-2021TUS069394

PATIENT
  Age: 66 Year
  Sex: Female
  Weight: 83 kg

DRUGS (41)
  1. HUMAN IMMUNOGLOBULIN G [Suspect]
     Active Substance: HUMAN IMMUNOGLOBULIN G
     Indication: Immunodeficiency common variable
     Dosage: 8 GRAM, 1/WEEK
     Dates: start: 20211029
  2. ACETAMINOPHEN [Concomitant]
     Active Substance: ACETAMINOPHEN
  3. EPINEPHRINE [Concomitant]
     Active Substance: EPINEPHRINE
  4. ZYRTEC [Concomitant]
     Active Substance: CETIRIZINE HYDROCHLORIDE
  5. DRISDOL [Concomitant]
     Active Substance: ERGOCALCIFEROL
  6. METHOCARBAMOL [Concomitant]
     Active Substance: METHOCARBAMOL
  7. CRESTOR [Concomitant]
     Active Substance: ROSUVASTATIN CALCIUM
  8. SPIRIVA [Concomitant]
     Active Substance: TIOTROPIUM BROMIDE MONOHYDRATE
  9. TOPIRAMATE [Concomitant]
     Active Substance: TOPIRAMATE
  10. FIORICET [Concomitant]
     Active Substance: ACETAMINOPHEN\BUTALBITAL\CAFFEINE
  11. IMODIUM A-D [Concomitant]
     Active Substance: LOPERAMIDE HYDROCHLORIDE
  12. SINGULAIR [Concomitant]
     Active Substance: MONTELUKAST SODIUM
  13. PRAZOSIN HYDROCHLORIDE [Concomitant]
     Active Substance: PRAZOSIN HYDROCHLORIDE
     Indication: Product used for unknown indication
  14. ZOLOFT [Concomitant]
     Active Substance: SERTRALINE HYDROCHLORIDE
  15. LAMOTRIGINE [Concomitant]
     Active Substance: LAMOTRIGINE
  16. PANTOPRAZOLE SODIUM [Concomitant]
     Active Substance: PANTOPRAZOLE SODIUM
  17. ROPINIROLE HYDROCHLORIDE [Concomitant]
     Active Substance: ROPINIROLE HYDROCHLORIDE
  18. ATIVAN [Concomitant]
     Active Substance: LORAZEPAM
  19. HYDROXYZINE HYDROCHLORIDE [Concomitant]
     Active Substance: HYDROXYZINE HYDROCHLORIDE
  20. LIDOCAINE [Concomitant]
     Active Substance: LIDOCAINE
  21. MUCINEX [Concomitant]
     Active Substance: GUAIFENESIN
  22. SEROQUEL [Concomitant]
     Active Substance: QUETIAPINE FUMARATE
  23. MELATONIN [Concomitant]
     Active Substance: MELATONIN
  24. PREDNISONE [Concomitant]
     Active Substance: PREDNISONE
  25. VENTOLIN HFA [Concomitant]
     Active Substance: ALBUTEROL SULFATE
  26. FENOFIBRATE [Concomitant]
     Active Substance: FENOFIBRATE
  27. DIPHENHYDRAMINE HYDROCHLORIDE [Concomitant]
     Active Substance: DIPHENHYDRAMINE HYDROCHLORIDE
  28. CYPROHEPTADINE HYDROCHLORIDE [Concomitant]
     Active Substance: CYPROHEPTADINE HYDROCHLORIDE
  29. GABAPENTIN [Concomitant]
     Active Substance: GABAPENTIN
  30. CARAFATE [Concomitant]
     Active Substance: SUCRALFATE
  31. SYMBICORT [Concomitant]
     Active Substance: BUDESONIDE\FORMOTEROL FUMARATE DIHYDRATE
  32. BENZONATATE [Concomitant]
     Active Substance: BENZONATATE
  33. EMGALITY [Concomitant]
     Active Substance: GALCANEZUMAB-GNLM
     Indication: Product used for unknown indication
  34. FERROUS SULFATE [Concomitant]
     Active Substance: FERROUS SULFATE
  35. LACTOBACILLUS ACIDOPHILUS [Concomitant]
     Active Substance: LACTOBACILLUS ACIDOPHILUS
  36. SYNTHROID [Concomitant]
     Active Substance: LEVOTHYROXINE SODIUM
  37. REGLAN [Concomitant]
     Active Substance: METOCLOPRAMIDE HYDROCHLORIDE
  38. ZOFRAN [Concomitant]
     Active Substance: ONDANSETRON HYDROCHLORIDE
  39. DIPHENHYDRAMINE [Concomitant]
     Active Substance: DIPHENHYDRAMINE
  40. Lmx [Concomitant]
  41. IRON [Concomitant]
     Active Substance: IRON

REACTIONS (28)
  - Death [Fatal]
  - Enteritis [Unknown]
  - Pneumonia aspiration [Unknown]
  - Gastrointestinal disorder [Unknown]
  - Pneumonia [Unknown]
  - Faecaloma [Unknown]
  - Illness [Unknown]
  - Pleural effusion [Unknown]
  - Post procedural complication [Unknown]
  - Nasopharyngitis [Unknown]
  - Fall [Unknown]
  - Memory impairment [Not Recovered/Not Resolved]
  - COVID-19 [Unknown]
  - Body temperature abnormal [Unknown]
  - Pharyngitis streptococcal [Unknown]
  - Implant site discharge [Unknown]
  - Seasonal allergy [Unknown]
  - Urinary tract infection [Unknown]
  - Product dose omission issue [Unknown]
  - Multiple allergies [Unknown]
  - Anaesthetic complication [Unknown]
  - Product use issue [Unknown]
  - Oxygen saturation decreased [Unknown]
  - Tremor [Not Recovered/Not Resolved]
  - Chills [Unknown]
  - Migraine [Recovered/Resolved]
  - Headache [Recovered/Resolved]
  - Nausea [Recovered/Resolved]

NARRATIVE: CASE EVENT DATE: 20240524
